FAERS Safety Report 15756344 (Version 5)
Quarter: 2019Q2

REPORT INFORMATION
  Report Type: Report from Study
  Country: None (occurrence: CA)
  Receive Date: 20181224
  Receipt Date: 20190408
  Transmission Date: 20190711
  Serious: Yes (Death, Hospitalization, Other)
  Sender: FDA-Public Use
  Company Number: CA-ABBVIE-18S-028-2602071-00

PATIENT
  Sex: Male
  Weight: 65.83 kg

DRUGS (15)
  1. XGEVA [Concomitant]
     Active Substance: DENOSUMAB
     Indication: PRODUCT USED FOR UNKNOWN INDICATION
     Route: 058
  2. TYLENOL [Concomitant]
     Active Substance: ACETAMINOPHEN
     Dosage: #3, 1 TAB Q.I.D. P.R.N.
     Route: 048
  3. SPIRONOLACTONE. [Concomitant]
     Active Substance: SPIRONOLACTONE
     Indication: PRODUCT USED FOR UNKNOWN INDICATION
     Route: 048
  4. DIMENHYDRINATE. [Concomitant]
     Active Substance: DIMENHYDRINATE
     Indication: PRODUCT USED FOR UNKNOWN INDICATION
     Dosage: 12.5-50 MG, OR IV Q.4 HOURS AS NEEDED
     Route: 048
  5. TYLENOL [Concomitant]
     Active Substance: ACETAMINOPHEN
     Indication: PAIN
     Dosage: #3, PER ORAL OR PER RECTUM, 325-975 MG, Q.4 HOURS
     Route: 048
     Dates: start: 201809, end: 20190109
  6. FERROUS GLUCONATE [Concomitant]
     Active Substance: FERROUS GLUCONATE
     Indication: PRODUCT USED FOR UNKNOWN INDICATION
     Route: 048
  7. VOLTAREN EMULGEL [Concomitant]
     Active Substance: DICLOFENAC DIETHYLAMINE
     Indication: PRODUCT USED FOR UNKNOWN INDICATION
     Dosage: B.I.D. P.R.N.
     Route: 061
  8. FRAGMIN [Concomitant]
     Active Substance: DALTEPARIN SODIUM
     Indication: GASTROINTESTINAL DISORDER
  9. GRAVOL [Concomitant]
     Active Substance: DIMENHYDRINATE
     Indication: PRODUCT USED FOR UNKNOWN INDICATION
     Dates: start: 201901
  10. MELATONIN [Concomitant]
     Active Substance: MELATONIN
     Indication: PRODUCT USED FOR UNKNOWN INDICATION
     Dosage: Q.H.S. AS NEEDED
     Route: 048
  11. LUPRON DEPOT [Suspect]
     Active Substance: LEUPROLIDE ACETATE
     Indication: PROSTATE CANCER
     Route: 030
     Dates: start: 20170920, end: 20180925
  12. CALCIUM CARBONATE. [Concomitant]
     Active Substance: CALCIUM CARBONATE
     Indication: PRODUCT USED FOR UNKNOWN INDICATION
  13. CODEINE CONTIN [Concomitant]
     Active Substance: CODEINE SULFATE
     Indication: PRODUCT USED FOR UNKNOWN INDICATION
     Route: 048
  14. PANTOLOC [Concomitant]
     Active Substance: PANTOPRAZOLE SODIUM
     Indication: PRODUCT USED FOR UNKNOWN INDICATION
     Route: 048
  15. FRAGMIN [Concomitant]
     Active Substance: DALTEPARIN SODIUM
     Indication: HYPOGLYCAEMIA
     Route: 058

REACTIONS (41)
  - Death [Fatal]
  - Blood albumin decreased [Unknown]
  - Nausea [Unknown]
  - Ascites [Unknown]
  - Lung consolidation [Unknown]
  - Gamma-glutamyltransferase increased [Unknown]
  - Aspartate aminotransferase increased [Unknown]
  - Decreased appetite [Unknown]
  - Dyspnoea [Unknown]
  - Fall [Unknown]
  - Glomerular filtration rate decreased [Unknown]
  - Hepatic enzyme increased [Unknown]
  - Haemoglobin abnormal [Unknown]
  - Abdominal distension [Unknown]
  - Chronic kidney disease [Unknown]
  - Asthenia [Not Recovered/Not Resolved]
  - Arthralgia [Unknown]
  - Constipation [Unknown]
  - Deep vein thrombosis [Unknown]
  - Atelectasis [Unknown]
  - Bone disorder [Unknown]
  - Blood alkaline phosphatase increased [Unknown]
  - Anaemia of chronic disease [Unknown]
  - Ascites [Unknown]
  - Pathological fracture [Unknown]
  - Dyspepsia [Unknown]
  - Fatigue [Unknown]
  - Femur fracture [Unknown]
  - Metastases to liver [Unknown]
  - Bone cancer [Unknown]
  - Prostate cancer metastatic [Unknown]
  - Pallor [Unknown]
  - Abdominal distension [Unknown]
  - Radiation injury [Unknown]
  - Oedema peripheral [Unknown]
  - Back pain [Unknown]
  - Urinary tract infection [Unknown]
  - Fatigue [Unknown]
  - Bone cancer metastatic [Unknown]
  - Hepatomegaly [Unknown]
  - Asthenia [Unknown]

NARRATIVE: CASE EVENT DATE: 2018
